FAERS Safety Report 8405381-X (Version None)
Quarter: 2012Q2

REPORT INFORMATION
  Report Type: 
  Country: None (occurrence: None)
  Receive Date: 20120604
  Receipt Date: 20120525
  Transmission Date: 20120825
  Serious: Yes (Hospitalization)
  Sender: FDA-Public Use
  Company Number: US-BIOGENIDEC-2009BI010153

PATIENT
  Age: 52 Year
  Sex: Female

DRUGS (9)
  1. TYSABRI [Suspect]
     Route: 042
     Dates: start: 20071119
  2. NEURONTIN [Concomitant]
  3. MAGNESIUM [Concomitant]
  4. TYSABRI [Suspect]
     Indication: MULTIPLE SCLEROSIS
     Route: 042
     Dates: start: 20071119
  5. SINGULAIR [Concomitant]
  6. VITAMIN D [Concomitant]
  7. ADVAIR DISKUS 100/50 [Concomitant]
  8. CALCIUM [Concomitant]
  9. PREMARIN [Concomitant]

REACTIONS (5)
  - ANAPHYLACTIC REACTION [None]
  - FORMICATION [None]
  - HYPERSENSITIVITY [None]
  - ANAPHYLACTIC SHOCK [None]
  - LIP SWELLING [None]
